FAERS Safety Report 26018956 (Version 1)
Quarter: 2025Q4

REPORT INFORMATION
  Report Type: Spontaneous
  Country: US (occurrence: US)
  Receive Date: 20251110
  Receipt Date: 20251110
  Transmission Date: 20260117
  Serious: Yes (Hospitalization, Other)
  Sender: HIKMA
  Company Number: US-HIKMA PHARMACEUTICALS USA INC.-US-H14001-24-04257

PATIENT
  Sex: Female

DRUGS (1)
  1. METHOTREXATE [Suspect]
     Active Substance: METHOTREXATE
     Indication: Arthritis
     Dosage: UNKNOWN
     Route: 065

REACTIONS (5)
  - Bronchitis [Not Recovered/Not Resolved]
  - Dyspnoea [Unknown]
  - Fatigue [Unknown]
  - Sleep apnoea syndrome [Unknown]
  - Pathogen resistance [Unknown]
